FAERS Safety Report 7620924-1 (Version None)
Quarter: 2011Q3

REPORT INFORMATION
  Report Type: 
  Country: None (occurrence: None)
  Receive Date: 20110719
  Receipt Date: 20110711
  Transmission Date: 20111222
  Serious: Yes (Other)
  Sender: FDA-Public Use
  Company Number: US-ABBOTT-11P-163-0838773-00

PATIENT
  Age: 66 Year
  Sex: Female

DRUGS (11)
  1. DIGOXIN [Concomitant]
     Indication: PRODUCT USED FOR UNKNOWN INDICATION
     Dosage: 1/2 TAB DAILY
  2. TYLENOL-500 [Concomitant]
     Indication: PRODUCT USED FOR UNKNOWN INDICATION
  3. AZOPT [Concomitant]
     Indication: PRODUCT USED FOR UNKNOWN INDICATION
  4. HUMIRA [Suspect]
     Indication: RHEUMATOID ARTHRITIS
     Dates: start: 20110101
  5. B3 [Concomitant]
     Indication: PRODUCT USED FOR UNKNOWN INDICATION
  6. ZITHROMAX [Concomitant]
     Indication: RADIOACTIVE IODINE THERAPY
     Dosage: 3 PACKS TOTAL
     Dates: start: 20110624
  7. ALPHAGAN [Concomitant]
     Indication: PRODUCT USED FOR UNKNOWN INDICATION
     Dosage: 0.1% THREE TIMES DAILY
  8. HYDROCORTISONE [Concomitant]
     Indication: PRODUCT USED FOR UNKNOWN INDICATION
     Dosage: QAM
  9. SPIRIVA [Concomitant]
     Indication: PRODUCT USED FOR UNKNOWN INDICATION
  10. ATENOLOL [Concomitant]
     Indication: HEART RATE INCREASED
  11. NEVANAC [Concomitant]
     Indication: PRODUCT USED FOR UNKNOWN INDICATION
     Dosage: 0.1% THREE TIMES DAILY

REACTIONS (2)
  - OROPHARYNGEAL PAIN [None]
  - THYROID DISORDER [None]
